FAERS Safety Report 7437170-7 (Version None)
Quarter: 2011Q2

REPORT INFORMATION
  Report Type: 
  Country: None (occurrence: None)
  Receive Date: 20110426
  Receipt Date: 20110421
  Transmission Date: 20111010
  Serious: Yes (Death)
  Sender: FDA-Public Use
  Company Number: US-JNJFOC-20110410150

PATIENT
  Sex: Female

DRUGS (2)
  1. ANTIBIOTIC NOS [Suspect]
     Indication: TOOTH DISORDER
     Route: 065
  2. PROPULSID [Suspect]
     Indication: PRODUCT USED FOR UNKNOWN INDICATION
     Route: 065

REACTIONS (1)
  - DEATH [None]
